FAERS Safety Report 14588379 (Version 1)
Quarter: 2018Q1

REPORT INFORMATION
  Report Type: Spontaneous
  Country: US (occurrence: US)
  Receive Date: 20180301
  Receipt Date: 20180301
  Transmission Date: 20180509
  Serious: Yes (Other)
  Sender: FDA-Public Use
  Company Number: US-ABBVIE-18P-163-2269774-00

PATIENT
  Sex: Female

DRUGS (1)
  1. MAVYRET [Suspect]
     Active Substance: GLECAPREVIR\PIBRENTASVIR
     Indication: PRODUCT USED FOR UNKNOWN INDICATION
     Route: 065

REACTIONS (9)
  - Arthralgia [Unknown]
  - Cough [Unknown]
  - Asthenia [Unknown]
  - Blood potassium decreased [Unknown]
  - Blood iron decreased [Unknown]
  - Fatigue [Unknown]
  - Pain in extremity [Unknown]
  - Vitamin D decreased [Unknown]
  - Hepatitis C RNA decreased [Unknown]
